FAERS Safety Report 13305733 (Version 1)
Quarter: 2017Q1

REPORT INFORMATION
  Report Type: Spontaneous
  Country: US (occurrence: US)
  Receive Date: 20170308
  Receipt Date: 20170308
  Transmission Date: 20170428
  Serious: No
  Sender: FDA-Public Use
  Company Number: US-APOTEX-2017AP006073

PATIENT
  Age: 74 Year
  Sex: Male

DRUGS (1)
  1. APO-ACYCLOVIR - TAB 400MG [Suspect]
     Active Substance: ACYCLOVIR
     Indication: STOMATITIS
     Dosage: UNK, BID
     Route: 065
     Dates: start: 201608

REACTIONS (4)
  - Disease recurrence [None]
  - Product substitution issue [Unknown]
  - Stomatitis [None]
  - Drug ineffective [Unknown]

NARRATIVE: CASE EVENT DATE: 201608
